FAERS Safety Report 21902133 (Version 1)
Quarter: 2023Q1

REPORT INFORMATION
  Report Type: Spontaneous
  Country: FR (occurrence: FR)
  Receive Date: 20230124
  Receipt Date: 20230124
  Transmission Date: 20230417
  Serious: Yes (Other)
  Sender: FDA-Public Use
  Company Number: FR-AFSSAPS-LL20223669

PATIENT
  Age: 54 Year
  Sex: Female

DRUGS (2)
  1. QUETIAPINE [Suspect]
     Active Substance: QUETIAPINE
     Indication: Depression
     Dosage: 08/22 : 800 MG/D ; 09/22: 300 MG/D ; 07/10/22: 1200 MG/D
     Route: 048
     Dates: start: 2020
  2. VALPROMIDE [Suspect]
     Active Substance: VALPROMIDE
     Indication: Epilepsy
     Dosage: 300 MG LIN THE MORNING AND 600 MG IN THE EVENING
     Route: 048
     Dates: start: 20221031

REACTIONS (1)
  - Agranulocytosis [Recovering/Resolving]

NARRATIVE: CASE EVENT DATE: 20221213
